FAERS Safety Report 5555886-4 (Version None)
Quarter: 2007Q4

REPORT INFORMATION
  Report Type: 
  Country: None (occurrence: None)
  Receive Date: 20071213
  Receipt Date: 20071126
  Transmission Date: 20080405
  Serious: No
  Sender: FDA-Public Use
  Company Number: US-BOEHRINGER INGELHEIM PHARMACEUTICALS, INC.-2007-BP-25075BP

PATIENT
  Sex: Male

DRUGS (3)
  1. MIRAPEX [Suspect]
     Indication: PARKINSON'S DISEASE
     Route: 048
     Dates: start: 20000101
  2. STALEVO 100 [Concomitant]
     Indication: PARKINSON'S DISEASE
  3. BENICAR [Concomitant]

REACTIONS (2)
  - BACK PAIN [None]
  - INSOMNIA [None]
